FAERS Safety Report 9708934 (Version 2)
Quarter: 2013Q4

REPORT INFORMATION
  Report Type: Spontaneous
  Country: US (occurrence: US)
  Receive Date: 20131125
  Receipt Date: 20131210
  Transmission Date: 20140711
  Serious: No
  Sender: FDA-Public Use
  Company Number: US-009507513-1311USA010557

PATIENT
  Age: 80 Year
  Sex: Female
  Weight: 63.49 kg

DRUGS (6)
  1. OXYTROL FOR WOMEN [Suspect]
     Indication: NOCTURIA
     Dosage: 1 DF, ONCE
     Route: 062
     Dates: start: 20131031, end: 20131103
  2. TOPROL XL TABLETS [Concomitant]
     Indication: HYPERTENSION
     Dosage: UNK, UNKNOWN
  3. LOSARTAN POTASSIUM [Concomitant]
     Indication: HYPERTENSION
     Dosage: UNK, UNKNOWN
  4. IBUPROFEN [Concomitant]
     Indication: ARTHRITIS
     Dosage: UNK, UNKNOWN
  5. TRAMADOL HYDROCHLORIDE [Concomitant]
     Indication: ARTHRITIS
     Dosage: UNK, UNKNOWN
  6. ONGLYZA [Concomitant]
     Indication: PRODUCT USED FOR UNKNOWN INDICATION
     Dosage: UNK, UNKNOWN

REACTIONS (2)
  - Pollakiuria [Unknown]
  - Drug ineffective [Unknown]
